FAERS Safety Report 23039977 (Version 1)
Quarter: 2023Q4

REPORT INFORMATION
  Report Type: Report from Study
  Country: BR (occurrence: BR)
  Receive Date: 20231006
  Receipt Date: 20231006
  Transmission Date: 20240110
  Serious: Yes (Life-Threatening, Hospitalization)
  Sender: FDA-Public Use
  Company Number: BR-Merck Healthcare KGaA-2023479316

PATIENT
  Age: 0 Year
  Sex: Female
  Weight: 3 kg

DRUGS (6)
  1. MAVENCLAD [Suspect]
     Active Substance: CLADRIBINE
     Indication: Multiple sclerosis
     Dosage: PRODUCT ADMINISTERED BY MOTHER: YEAR 1 MONTH 1 THERAPY: 2 DF ON DAYS 1 TO 2 AND 1 DF ON DAYS 3 TO 5
     Route: 064
     Dates: start: 20210614, end: 20210618
  2. MAVENCLAD [Suspect]
     Active Substance: CLADRIBINE
     Dosage: PRODUCT ADMINISTERED BY MOTHER: YEAR 1 MONTH 2 THERAPY: 2 DF ON DAYS 1 TO 2 AND 1 DF ON DAYS 3 TO 5
     Route: 064
     Dates: start: 20210714, end: 20210718
  3. MAVENCLAD [Suspect]
     Active Substance: CLADRIBINE
     Dosage: PRODUCT ADMINISTERED BY MOTHER: YEAR 2 MONTH 1 THERAPY: 2 DF ON DAYS 1 TO 2 AND 1 DF ON DAYS 3 TO 5
     Route: 064
     Dates: start: 20220627, end: 20220701
  4. MAVENCLAD [Suspect]
     Active Substance: CLADRIBINE
     Dosage: PRODUCT ADMINISTERED BY MOTHER: YEAR 2 MONTH 2 THERAPY: 2 DF ON DAYS 1 TO 2 AND 1 DF ON DAYS 3 TO 5
     Route: 064
     Dates: start: 20220727, end: 20220731
  5. BCG VACCINE [Concomitant]
     Active Substance: BCG VACCINE
     Indication: Product used for unknown indication
     Dates: start: 20230914
  6. HEPATITIS B VIRUS VACCINE [Concomitant]
     Active Substance: HEPATITIS B VIRUS VACCINE
     Indication: Product used for unknown indication
     Dates: start: 20230914

REACTIONS (2)
  - Unresponsive to stimuli [Unknown]
  - Sepsis neonatal [Unknown]

NARRATIVE: CASE EVENT DATE: 20230831
